FAERS Safety Report 8009552-6 (Version None)
Quarter: 2011Q4

REPORT INFORMATION
  Report Type: 
  Country: None (occurrence: None)
  Receive Date: 20111227
  Receipt Date: 20111215
  Transmission Date: 20120403
  Serious: Yes (Hospitalization, Other)
  Sender: FDA-Public Use
  Company Number: US-ASTRAZENECA-2011SE14797

PATIENT
  Age: 71 Year
  Sex: Male

DRUGS (3)
  1. ZETIA [Concomitant]
  2. CRESTOR [Suspect]
     Route: 048
  3. TOPROL-XL [Suspect]
     Route: 048

REACTIONS (3)
  - CORONARY ARTERY OCCLUSION [None]
  - WRONG DRUG ADMINISTERED [None]
  - EYE DISORDER [None]
